FAERS Safety Report 5684362-3 (Version None)
Quarter: 2008Q1

REPORT INFORMATION
  Report Type: 
  Country: None (occurrence: None)
  Receive Date: 20080328
  Receipt Date: 20080325
  Transmission Date: 20080703
  Serious: Yes (Hospitalization)
  Sender: FDA-Public Use
  Company Number: B0513612A

PATIENT
  Sex: Male

DRUGS (2)
  1. VALTREX [Suspect]
     Indication: HERPES ZOSTER
     Dosage: 500MG PER DAY
     Route: 048
  2. UNKNOWN DRUG [Concomitant]
     Indication: PRURITUS
     Route: 065

REACTIONS (1)
  - NERVOUS SYSTEM DISORDER [None]
